FAERS Safety Report 4484538-7 (Version None)
Quarter: 2004Q3

REPORT INFORMATION
  Report Type: 
  Country: None (occurrence: None)
  Receive Date: 20040921
  Receipt Date: 20040114
  Transmission Date: 20050211
  Serious: Yes (Hospitalization, Disabling)
  Sender: FDA-Public Use
  Company Number: 163-20785-04010007(0)

PATIENT
  Age: 45 Year
  Sex: Female

DRUGS (32)
  1. THALOMID [Suspect]
     Indication: MULTIPLE MYELOMA
     Dosage: 100 + 200 + 50 + 100 + 150 + 200  MG, DAILY, ORAL
     Route: 048
     Dates: start: 19991015, end: 20000701
  2. THALOMID [Suspect]
     Indication: MULTIPLE MYELOMA
     Dosage: 100 + 200 + 50 + 100 + 150 + 200  MG, DAILY, ORAL
     Route: 048
     Dates: start: 20000714, end: 20000901
  3. THALOMID [Suspect]
     Indication: MULTIPLE MYELOMA
     Dosage: 100 + 200 + 50 + 100 + 150 + 200  MG, DAILY, ORAL
     Route: 048
     Dates: start: 20000901, end: 20001001
  4. THALOMID [Suspect]
     Indication: MULTIPLE MYELOMA
     Dosage: 100 + 200 + 50 + 100 + 150 + 200  MG, DAILY, ORAL
     Route: 048
     Dates: start: 20001001, end: 20010101
  5. THALOMID [Suspect]
     Indication: MULTIPLE MYELOMA
     Dosage: 100 + 200 + 50 + 100 + 150 + 200  MG, DAILY, ORAL
     Route: 048
     Dates: start: 20010101, end: 20020801
  6. THALOMID [Suspect]
     Indication: MULTIPLE MYELOMA
     Dosage: 100 + 200 + 50 + 100 + 150 + 200  MG, DAILY, ORAL
     Route: 048
     Dates: start: 20020801
  7. DILANTIN [Suspect]
     Indication: CONVULSION
     Dosage: 200-300MG
     Dates: start: 20030801
  8. ERYTHROPOIETIN (ERYTHROPOIETIN) [Concomitant]
  9. VINCRISTINE [Concomitant]
  10. ADRIAMYCIN PFS [Concomitant]
  11. DEXAMETHASONE [Concomitant]
  12. CYTOXAN [Concomitant]
  13. ETOPOSIDE [Concomitant]
  14. ENALAPRIL (ENALAPRIL) [Concomitant]
  15. NADOLOL (NADOLOL0 [Concomitant]
  16. ACTOS [Concomitant]
  17. STARLIX [Concomitant]
  18. EVISTA [Concomitant]
  19. L-THYROXINE [Concomitant]
  20. RENAGEL [Concomitant]
  21. DILAUDID [Concomitant]
  22. DECADRON [Concomitant]
  23. COLACE (DOCUSATE SODIUM) [Concomitant]
  24. DULCOLAX [Concomitant]
  25. BECTRIM DS (BACTRIM) [Concomitant]
  26. NEURONTIN [Concomitant]
  27. NEXIUM [Concomitant]
  28. VITAMIN E [Concomitant]
  29. DURAGESIC (FENTANYL) (POULTICE OR PATCH) [Concomitant]
  30. MEGESTROL ACETATE [Concomitant]
  31. DIFLUCAN [Concomitant]
  32. ALBUTEROL [Concomitant]

REACTIONS (4)
  - ABASIA [None]
  - FATIGUE [None]
  - GRAND MAL CONVULSION [None]
  - NEUROPATHY [None]
